FAERS Safety Report 11525985 (Version 3)
Quarter: 2015Q4

REPORT INFORMATION
  Report Type: Report from Study
  Country: TW (occurrence: TW)
  Receive Date: 20150918
  Receipt Date: 20151016
  Transmission Date: 20160304
  Serious: Yes (Death, Hospitalization)
  Sender: FDA-Public Use
  Company Number: TW-ABBVIE-15K-153-1447014-00

PATIENT
  Age: 76 Year
  Sex: Female
  Weight: 50.4 kg

DRUGS (1)
  1. HUMIRA [Suspect]
     Active Substance: ADALIMUMAB
     Indication: RHEUMATOID ARTHRITIS
     Route: 058
     Dates: start: 20080610, end: 20150720

REACTIONS (19)
  - Haematocrit decreased [Unknown]
  - Blood potassium decreased [Unknown]
  - Blood albumin decreased [Unknown]
  - Respiratory failure [Fatal]
  - Septic shock [Fatal]
  - Fibrin D dimer increased [Unknown]
  - Heart rate decreased [Unknown]
  - White blood cell count increased [Not Recovered/Not Resolved]
  - Red blood cell count decreased [Unknown]
  - Activated partial thromboplastin time prolonged [Unknown]
  - Blood pressure decreased [Unknown]
  - Aspartate aminotransferase increased [Unknown]
  - Dyspnoea [Unknown]
  - Loss of consciousness [Unknown]
  - Prothrombin time prolonged [Unknown]
  - Oedema peripheral [Not Recovered/Not Resolved]
  - Haemoglobin decreased [Not Recovered/Not Resolved]
  - Blood sodium decreased [Unknown]
  - Blood urea increased [Unknown]

NARRATIVE: CASE EVENT DATE: 20150810
